FAERS Safety Report 12413728 (Version 1)
Quarter: 2016Q2

REPORT INFORMATION
  Report Type: Spontaneous
  Country: MY (occurrence: MY)
  Receive Date: 20160527
  Receipt Date: 20160527
  Transmission Date: 20160815
  Serious: Yes (Hospitalization, Other)
  Sender: FDA-Public Use
  Company Number: ALCN2016MY003758

PATIENT
  Age: 67 Year
  Sex: Female

DRUGS (6)
  1. GENTAMICIN SULFATE. [Suspect]
     Active Substance: GENTAMICIN SULFATE
     Indication: INTRAOCULAR LENS IMPLANT
     Dosage: UNK UNK, QH
     Route: 047
     Dates: start: 20160507
  2. VANCOMYCIN [Concomitant]
     Active Substance: VANCOMYCIN
     Indication: INTRAOCULAR LENS IMPLANT
     Dosage: UNK
     Route: 031
     Dates: start: 20160507
  3. AMIKACIN [Concomitant]
     Active Substance: AMIKACIN
     Indication: INTRAOCULAR LENS IMPLANT
     Dosage: UNK
     Route: 031
     Dates: start: 20160507
  4. VIGAMOX [Suspect]
     Active Substance: MOXIFLOXACIN HYDROCHLORIDE
     Indication: INTRAOCULAR LENS IMPLANT
     Dosage: UNK
     Route: 047
     Dates: start: 20160505
  5. AVELOX ABC [Concomitant]
     Indication: INTRAOCULAR LENS IMPLANT
     Dosage: 400 MG, QD
     Route: 065
  6. BSS PLUS [Suspect]
     Active Substance: CALCIUM CHLORIDE\DEXTROSE\MAGNESIUM CHLORIDE\OXIGLUTATIONE\POTASSIUM CHLORIDE\SODIUM BICARBONATE\SODIUM CHLORIDE\SODIUM PHOSPHATE\SODIUM PHOSPHATE, DIBASIC
     Indication: INTRAOCULAR LENS IMPLANT
     Dosage: UNK
     Route: 047
     Dates: start: 20160507, end: 20160507

REACTIONS (6)
  - Endophthalmitis [Not Recovered/Not Resolved]
  - Intraocular pressure increased [Not Recovered/Not Resolved]
  - Vitritis [Not Recovered/Not Resolved]
  - Off label use [Not Recovered/Not Resolved]
  - Vision blurred [Not Recovered/Not Resolved]
  - Hypopyon [Not Recovered/Not Resolved]

NARRATIVE: CASE EVENT DATE: 20160507
